FAERS Safety Report 7685752-X (Version None)
Quarter: 2011Q3

REPORT INFORMATION
  Report Type: 
  Country: None (occurrence: None)
  Receive Date: 20110815
  Receipt Date: 20110815
  Transmission Date: 20111222
  Serious: Yes (Life-Threatening, Other)
  Sender: FDA-Public Use
  Company Number: None

PATIENT
  Age: 48 Year
  Sex: Male
  Weight: 69.853 kg

DRUGS (2)
  1. OXYCONTIN [Suspect]
     Indication: OSTEOARTHRITIS
     Dosage: TWICE DAILY
     Route: 048
     Dates: start: 20061010, end: 20110805
  2. OXYCONTIN [Concomitant]
     Indication: JOINT DISLOCATION
     Dosage: ONCE A DAY IN THE MORING
     Route: 048
     Dates: start: 20061010, end: 20110805

REACTIONS (1)
  - PRODUCT FORMULATION ISSUE [None]
